FAERS Safety Report 8592246-6 (Version None)
Quarter: 2012Q3

REPORT INFORMATION
  Report Type: 
  Country: None (occurrence: None)
  Receive Date: 20120814
  Receipt Date: 20120524
  Transmission Date: 20120928
  Serious: Yes (Other)
  Sender: FDA-Public Use
  Company Number: US-PFIZER INC-2012197009

PATIENT
  Sex: Female

DRUGS (2)
  1. LYRICA [Suspect]
     Dosage: 150 MG, 3X/DAY
  2. GABAPENTIN [Suspect]
     Dosage: UNK

REACTIONS (6)
  - NERVE INJURY [None]
  - SELF-MEDICATION [None]
  - INTERVERTEBRAL DISC DEGENERATION [None]
  - PHARYNGEAL NEOPLASM [None]
  - HYPOTONIA [None]
  - FIBROMYALGIA [None]
